FAERS Safety Report 10131286 (Version 1)
Quarter: 2014Q2

REPORT INFORMATION
  Report Type: Spontaneous
  Country: US (occurrence: US)
  Receive Date: 20140428
  Receipt Date: 20140428
  Transmission Date: 20141212
  Serious: No
  Sender: FDA-Public Use
  Company Number: US-GLAXOSMITHKLINE-A1036391A

PATIENT
  Age: 57 Year
  Sex: Female

DRUGS (4)
  1. TWINRIX [Suspect]
     Indication: PROPHYLAXIS
     Dosage: .5ML SINGLE DOSE
     Route: 065
     Dates: start: 20130711, end: 20130711
  2. OMEPRAZOLE [Suspect]
     Indication: PRODUCT USED FOR UNKNOWN INDICATION
     Route: 065
  3. ONDANSETRON [Suspect]
     Indication: PRODUCT USED FOR UNKNOWN INDICATION
     Route: 065
  4. LACTULOSE [Suspect]
     Indication: PRODUCT USED FOR UNKNOWN INDICATION
     Route: 065

REACTIONS (4)
  - Erythema [Unknown]
  - Feeling hot [Unknown]
  - Pruritus [Unknown]
  - Underdose [Unknown]
